FAERS Safety Report 17302270 (Version 1)
Quarter: 2020Q1

REPORT INFORMATION
  Report Type: Spontaneous
  Country: IT (occurrence: IT)
  Receive Date: 20200122
  Receipt Date: 20200122
  Transmission Date: 20200409
  Serious: Yes (Other)
  Sender: FDA-Public Use
  Company Number: IT-SA-2020SA014152

PATIENT
  Age: 47 Year
  Sex: Female

DRUGS (5)
  1. APIDRA [Suspect]
     Active Substance: INSULIN GLULISINE
     Dosage: 2 DF, QD
     Route: 058
  2. TRESIBA [Suspect]
     Active Substance: INSULIN DEGLUDEC
     Dosage: 1 DF, QD
     Route: 058
  3. CARDIOASPIRIN [Concomitant]
     Active Substance: ASPIRIN
     Dosage: UNK
     Route: 065
  4. CARDICOR [Concomitant]
     Active Substance: BISOPROLOL
     Dosage: UNK
     Route: 065
  5. EUTIROX [Concomitant]
     Active Substance: LEVOTHYROXINE SODIUM
     Dosage: UNK
     Route: 065

REACTIONS (1)
  - Syncope [Recovered/Resolved]

NARRATIVE: CASE EVENT DATE: 20200104
